FAERS Safety Report 10313091 (Version 1)
Quarter: 2014Q3

REPORT INFORMATION
  Report Type: Spontaneous
  Country: US (occurrence: None)
  Receive Date: 20140717
  Receipt Date: 20140717
  Transmission Date: 20150326
  Serious: Yes (Hospitalization, Disabling, Other)
  Sender: FDA-Public Use
  Company Number: None

PATIENT
  Age: 23 Year
  Sex: Female
  Weight: 92.08 kg

DRUGS (1)
  1. IMPLANON [Suspect]
     Active Substance: ETONOGESTREL

REACTIONS (12)
  - Dysmenorrhoea [None]
  - Quality of life decreased [None]
  - Polycystic ovaries [None]
  - Depression [None]
  - Headache [None]
  - Blood cholesterol increased [None]
  - Menstruation irregular [None]
  - Weight increased [None]
  - CSF pressure increased [None]
  - Unevaluable event [None]
  - Device difficult to use [None]
  - Infertility [None]

NARRATIVE: CASE EVENT DATE: 20110916
